FAERS Safety Report 18237697 (Version 5)
Quarter: 2020Q4

REPORT INFORMATION
  Report Type: Spontaneous
  Country: US (occurrence: US)
  Receive Date: 20200907
  Receipt Date: 20201104
  Transmission Date: 20210113
  Serious: Yes (Other)
  Sender: FDA-Public Use
  Company Number: US-GLAXOSMITHKLINE-US2020AMR177935

PATIENT
  Age: 54 Year
  Sex: Female

DRUGS (3)
  1. ZEJULA [Suspect]
     Active Substance: NIRAPARIB
     Dosage: 100 MG, QD
  2. ZEJULA [Suspect]
     Active Substance: NIRAPARIB
     Dosage: 300 MG, QD
  3. ZEJULA [Suspect]
     Active Substance: NIRAPARIB
     Indication: MALIGNANT PERITONEAL NEOPLASM
     Dosage: 300 MG, QD
     Route: 048
     Dates: start: 20200825

REACTIONS (10)
  - Pain [Unknown]
  - Bowel movement irregularity [Not Recovered/Not Resolved]
  - Haematochezia [Not Recovered/Not Resolved]
  - Decreased appetite [Unknown]
  - Flatulence [Unknown]
  - Nausea [Unknown]
  - Vomiting [Unknown]
  - Dysphagia [Unknown]
  - Haemorrhoids [Not Recovered/Not Resolved]
  - Cough [Not Recovered/Not Resolved]

NARRATIVE: CASE EVENT DATE: 20200923
